FAERS Safety Report 5427469-8 (Version None)
Quarter: 2007Q3

REPORT INFORMATION
  Report Type: 
  Country: None (occurrence: None)
  Receive Date: 20070828
  Receipt Date: 20070821
  Transmission Date: 20080115
  Serious: Yes (Other)
  Sender: FDA-Public Use
  Company Number: PHBS2007SE14005

PATIENT
  Age: 82 Year
  Sex: Male

DRUGS (8)
  1. TROMBYL [Concomitant]
  2. METOPROLOL TARTRATE [Concomitant]
  3. PLENDIL [Concomitant]
  4. ATACAND [Concomitant]
  5. HYDREA [Concomitant]
     Dosage: 500 MG, BID
     Dates: start: 20070312
  6. ESIDRIX [Suspect]
     Indication: BLOOD POTASSIUM INCREASED
     Dosage: 12.5 MG/DAY
     Route: 048
     Dates: start: 20061228
  7. ESIDRIX [Suspect]
     Dosage: 25 MG/DAY
     Route: 048
     Dates: end: 20070201
  8. ESIDRIX [Suspect]
     Dosage: 12.5 MG/DAY
     Route: 048
     Dates: start: 20070320

REACTIONS (1)
  - PLATELET COUNT INCREASED [None]
